FAERS Safety Report 9596572 (Version 1)
Quarter: 2013Q4

REPORT INFORMATION
  Report Type: Spontaneous
  Country: US (occurrence: US)
  Receive Date: 20131004
  Receipt Date: 20131004
  Transmission Date: 20140711
  Serious: No
  Sender: FDA-Public Use
  Company Number: US-009507513-1309USA002639

PATIENT
  Age: 84 Year
  Sex: Female

DRUGS (4)
  1. SINEMET [Suspect]
     Indication: PARKINSON^S DISEASE
     Dosage: ONE-HALF TABLET
     Route: 048
  2. SINEMET [Suspect]
     Dosage: ONE QUATER TABLET, BID
     Route: 048
  3. SINEMET [Suspect]
     Dosage: FULL TABLET
     Route: 048
  4. SINEMET [Suspect]
     Dosage: 1.5 DF, TID

REACTIONS (2)
  - Migraine [Recovered/Resolved]
  - Migraine [Unknown]
